FAERS Safety Report 14892104 (Version 2)
Quarter: 2018Q3

REPORT INFORMATION
  Report Type: Spontaneous
  Country: FR (occurrence: FR)
  Receive Date: 20180514
  Receipt Date: 20180821
  Transmission Date: 20181010
  Serious: Yes (Hospitalization, Other)
  Sender: FDA-Public Use
  Company Number: FR-TEVA-2018-FR-891601

PATIENT
  Age: 45 Year
  Sex: Female

DRUGS (8)
  1. GRANULOCYTE COLONY STIMULATING FACTOR [Concomitant]
     Active Substance: GRANULOCYTE COLONY-STIMULATING FACTOR NOS
     Indication: PREMEDICATION
     Dosage: UNK UNK, UNKNOWN FREQ.
     Route: 065
  2. MOZOBIL [Concomitant]
     Active Substance: PLERIXAFOR
     Indication: PREMEDICATION
     Dosage: UNK UNK, UNKNOWN FREQ.
     Route: 065
  3. ARACYTINE [Concomitant]
     Active Substance: CYTARABINE
     Indication: NON-HODGKIN^S LYMPHOMA STAGE IV
     Dosage: 1 G/M2, EVERY 12 HOURS
     Route: 065
  4. MELPHALAN. [Suspect]
     Active Substance: MELPHALAN
     Indication: NON-HODGKIN^S LYMPHOMA STAGE IV
     Route: 065
  5. RITUXIMAB. [Concomitant]
     Active Substance: RITUXIMAB
     Indication: NON-HODGKIN^S LYMPHOMA STAGE IV
     Route: 065
  6. ETOPOSIDE. [Concomitant]
     Active Substance: ETOPOSIDE
     Indication: NON-HODGKIN^S LYMPHOMA STAGE IV
     Dosage: 200 MG/M2, UNK, 12 H J?6 J?3
     Route: 065
  7. BENDAMUSTINE HYDROCHLORIDE. [Suspect]
     Active Substance: BENDAMUSTINE HYDROCHLORIDE
     Indication: LYMPHOMA
     Dosage: TO D?7 AND D?6
     Route: 042
  8. BENDAMUSTINE HYDROCHLORIDE. [Suspect]
     Active Substance: BENDAMUSTINE HYDROCHLORIDE
     Indication: WALDENSTROM^S MACROGLOBULINAEMIA STAGE IV
     Dosage: TO D?7 AND D?6
     Route: 042

REACTIONS (10)
  - Renal tubular disorder [Unknown]
  - Schistocytosis [Recovered/Resolved]
  - Generalised oedema [Recovered/Resolved]
  - Venoocclusive liver disease [Recovered/Resolved]
  - Thrombotic microangiopathy [Recovered/Resolved]
  - Off label use [Unknown]
  - Pericardial effusion [Recovered/Resolved]
  - Haemorrhage [Unknown]
  - Renal failure [Recovered/Resolved]
  - Acute kidney injury [Recovered/Resolved]
